FAERS Safety Report 6233724-4 (Version None)
Quarter: 2009Q2

REPORT INFORMATION
  Report Type: 
  Country: None (occurrence: None)
  Receive Date: 20090617
  Receipt Date: 20090605
  Transmission Date: 20091009
  Serious: Yes (Hospitalization)
  Sender: FDA-Public Use
  Company Number: DE-ELI_LILLY_AND_COMPANY-DE200905003963

PATIENT
  Age: 73 Year
  Sex: Male
  Weight: 80 kg

DRUGS (2)
  1. DROTRECOGIN ALFA (ACTIVATED) [Suspect]
     Indication: SEPSIS
     Dosage: 24 UG/KG/HR FOR 24 HOURS
     Route: 042
     Dates: start: 20090514, end: 20090518
  2. HEPARIN [Concomitant]
     Indication: THROMBOSIS PROPHYLAXIS
     Dates: start: 20090514

REACTIONS (2)
  - FAECES DISCOLOURED [None]
  - GASTRIC HAEMORRHAGE [None]
